FAERS Safety Report 6084293-3 (Version None)
Quarter: 2009Q1

REPORT INFORMATION
  Report Type: 
  Country: None (occurrence: None)
  Receive Date: 20090217
  Receipt Date: 20090205
  Transmission Date: 20090719
  Serious: Yes (Life-Threatening, Hospitalization)
  Sender: FDA-Public Use
  Company Number: US025177

PATIENT
  Sex: Male
  Weight: 86 kg

DRUGS (4)
  1. ACTIQ [Suspect]
     Dosage: 14400 UG ONCE BUCCAL
     Route: 002
     Dates: start: 20081208, end: 20081208
  2. LAROXYL [Concomitant]
  3. DAFALGAN [Concomitant]
  4. BIPROFENID [Concomitant]

REACTIONS (6)
  - COMA [None]
  - CYTOLYTIC HEPATITIS [None]
  - DRUG TOXICITY [None]
  - INTENTIONAL OVERDOSE [None]
  - RHABDOMYOLYSIS [None]
  - SUICIDE ATTEMPT [None]
